FAERS Safety Report 4465224-6 (Version None)
Quarter: 2004Q4

REPORT INFORMATION
  Report Type: 
  Country: None (occurrence: None)
  Receive Date: 20041004
  Receipt Date: 20040326
  Transmission Date: 20050328
  Serious: Yes (Death)
  Sender: FDA-Public Use
  Company Number: US-ABBOTT-04P-163-0255218-00

PATIENT
  Sex: Male
  Weight: 98.064 kg

DRUGS (4)
  1. DEPAKOTE ER [Suspect]
     Indication: SCHIZOPHRENIA
     Route: 048
     Dates: start: 20040303, end: 20040326
  2. ALPRAZOLAM [Concomitant]
     Indication: ANXIETY
     Dates: start: 20040301, end: 20040301
  3. VICODIN [Concomitant]
     Indication: PAIN
     Dates: start: 20040226, end: 20040226
  4. OXYCONTIN [Concomitant]
     Indication: PAIN
     Dates: start: 20040201, end: 20040227

REACTIONS (12)
  - ACCIDENTAL OVERDOSE [None]
  - ANALGESIC DRUG LEVEL ABOVE THERAPEUTIC [None]
  - CARDIOMEGALY [None]
  - COMA [None]
  - INCOHERENT [None]
  - LETHARGY [None]
  - MENTAL STATUS CHANGES [None]
  - PULMONARY CONGESTION [None]
  - PULMONARY OEDEMA [None]
  - SOMNOLENCE [None]
  - THERAPY NON-RESPONDER [None]
  - VOMITING [None]
